FAERS Safety Report 10836916 (Version 2)
Quarter: 2015Q2

REPORT INFORMATION
  Report Type: Spontaneous
  Country: US (occurrence: None)
  Receive Date: 20150218
  Receipt Date: 20150402
  Transmission Date: 20150821
  Serious: Yes (Hospitalization)
  Sender: FDA-Public Use
  Company Number: 201502030

PATIENT
  Age: 57 Year
  Sex: Male
  Weight: 97.98 kg

DRUGS (10)
  1. AXIRON [Suspect]
     Active Substance: TESTOSTERONE
     Dates: start: 2007
  2. HYDRALAZINE [Concomitant]
     Active Substance: HYDRALAZINE HYDROCHLORIDE
  3. NIFEDIPINE. [Concomitant]
     Active Substance: NIFEDIPINE
  4. METOPROLOL [Concomitant]
     Active Substance: METOPROLOL
  5. TESTIM [Suspect]
     Active Substance: TESTOSTERONE
     Indication: BLOOD TESTOSTERONE DECREASED
     Dosage: 150 GM BUT PATIENT APPLIED DRUG 3TIMES A WEEK, TRANSDERMAL
     Route: 062
     Dates: start: 20071110, end: 2013
  6. LOSARTAN [Concomitant]
     Active Substance: LOSARTAN
  7. METFORMIN [Concomitant]
     Active Substance: METFORMIN HYDROCHLORIDE
  8. ANDROGEL [Suspect]
     Active Substance: TESTOSTERONE
     Indication: BLOOD TESTOSTERONE DECREASED
     Route: 061
     Dates: start: 20070312
  9. CILOSTAZOL. [Concomitant]
     Active Substance: CILOSTAZOL
  10. GLIPIZIDE. [Concomitant]
     Active Substance: GLIPIZIDE

REACTIONS (4)
  - Injury [None]
  - Anxiety [None]
  - Myocardial infarction [None]
  - Pain [None]

NARRATIVE: CASE EVENT DATE: 20130119
